FAERS Safety Report 9736104 (Version 2)
Quarter: 2013Q4

REPORT INFORMATION
  Report Type: Report from Study
  Country: KR (occurrence: KR)
  Receive Date: 20131206
  Receipt Date: 20131212
  Transmission Date: 20140711
  Serious: Yes (Hospitalization)
  Sender: FDA-Public Use
  Company Number: KR-GLAXOSMITHKLINE-B0950584A

PATIENT
  Age: 68 Year
  Sex: Female
  Weight: 53 kg

DRUGS (10)
  1. LAPATINIB [Suspect]
     Indication: BREAST CANCER METASTATIC
     Dosage: 1000MG PER DAY
     Route: 048
     Dates: start: 20130614
  2. VINORELBINE [Suspect]
     Indication: BREAST CANCER METASTATIC
     Dosage: 200MGM2 CYCLIC
     Route: 042
     Dates: start: 20130614
  3. HYDROCODONE [Concomitant]
     Indication: MYALGIA
     Dosage: 1TAB AS REQUIRED
     Route: 048
     Dates: start: 20130118
  4. METOCLOPRAMIDE [Concomitant]
     Indication: NAUSEA
     Dosage: 5MG AS REQUIRED
     Route: 048
     Dates: start: 20130725
  5. PEGAPTANIB SODIUM [Concomitant]
     Indication: PERIPHERAL SENSORY NEUROPATHY
     Dosage: 300MG TWICE PER DAY
     Route: 048
     Dates: start: 20131114
  6. NORTRIPTYLINE [Concomitant]
     Indication: PERIPHERAL SENSORY NEUROPATHY
     Dosage: 10MG PER DAY
     Route: 048
     Dates: start: 20131114
  7. HYDROCHLOROTHIAZIDE [Concomitant]
     Indication: HYPERTENSION
     Dosage: 25MG PER DAY
     Route: 048
     Dates: start: 2006
  8. AMLODIPINE BESYLATE [Concomitant]
     Indication: HYPERTENSION
     Dosage: 5MG PER DAY
     Route: 048
     Dates: start: 2006
  9. IRON TABLETS [Concomitant]
     Indication: ANAEMIA
     Dosage: 1TAB TWICE PER DAY
     Route: 048
     Dates: start: 20131121
  10. CALCIUM SUPPLEMENT [Concomitant]
     Indication: OSTEOPENIA
     Dosage: 1TAB PER DAY
     Route: 048
     Dates: start: 20130118

REACTIONS (1)
  - Febrile neutropenia [Recovering/Resolving]
